FAERS Safety Report 8702158 (Version 2)
Quarter: 2013Q4

REPORT INFORMATION
  Report Type: Spontaneous
  Country: US (occurrence: US)
  Receive Date: 20120803
  Receipt Date: 20131101
  Transmission Date: 20140711
  Serious: No
  Sender: FDA-Public Use
  Company Number: US-009507513-83060034

PATIENT
  Sex: Male

DRUGS (2)
  1. ELAVIL [Suspect]
     Indication: DEPRESSION
     Dosage: 50 MG, HS
     Route: 048
     Dates: start: 19830413, end: 19830428
  2. XANAX [Concomitant]
     Dosage: 0.5 MG, UNK
     Dates: start: 19830413, end: 19830428

REACTIONS (1)
  - Alopecia [Unknown]
